FAERS Safety Report 12393698 (Version 1)
Quarter: 2016Q2

REPORT INFORMATION
  Report Type: Spontaneous
  Country: US (occurrence: US)
  Receive Date: 20160523
  Receipt Date: 20160523
  Transmission Date: 20160815
  Serious: No
  Sender: FDA-Public Use
  Company Number: US-BAUSCH-BL-2016-004333

PATIENT
  Age: 65 Year
  Sex: Female
  Weight: 59.47 kg

DRUGS (4)
  1. MYSOLINE [Suspect]
     Active Substance: PRIMIDONE
     Indication: TREMOR
     Route: 048
     Dates: start: 2015, end: 201602
  2. LITHIUM CARBONATE. [Concomitant]
     Active Substance: LITHIUM CARBONATE
     Indication: BIPOLAR DISORDER
     Route: 065
  3. IBUPROFEN. [Concomitant]
     Active Substance: IBUPROFEN
     Indication: FIBROMYALGIA
     Route: 065
  4. CLONAZEPAM. [Suspect]
     Active Substance: CLONAZEPAM
     Indication: TREMOR
     Route: 065
     Dates: start: 201602

REACTIONS (4)
  - Drug ineffective [Unknown]
  - Tremor [Not Recovered/Not Resolved]
  - Drug dose omission [Unknown]
  - Weight decreased [Not Recovered/Not Resolved]

NARRATIVE: CASE EVENT DATE: 201602
